FAERS Safety Report 24314615 (Version 1)
Quarter: 2024Q3

REPORT INFORMATION
  Report Type: Report from Study
  Country: US (occurrence: None)
  Receive Date: 20240913
  Receipt Date: 20240913
  Transmission Date: 20241016
  Serious: Yes (Other)
  Sender: ASTRAZENECA
  Company Number: 2024A203112

PATIENT
  Sex: Female

DRUGS (1)
  1. CALQUENCE [Suspect]
     Active Substance: ACALABRUTINIB
     Indication: B-cell lymphoma
     Route: 048
     Dates: start: 202306

REACTIONS (8)
  - Pneumothorax [Unknown]
  - Myocardial infarction [Unknown]
  - Autoimmune thyroiditis [Unknown]
  - Sepsis [Unknown]
  - Appendicitis [Unknown]
  - Malaise [Unknown]
  - Infection [Unknown]
  - Alopecia [Unknown]
